FAERS Safety Report 21299260 (Version 2)
Quarter: 2022Q3

REPORT INFORMATION
  Report Type: Spontaneous
  Country: IT (occurrence: IT)
  Receive Date: 20220906
  Receipt Date: 20220915
  Transmission Date: 20221027
  Serious: Yes (Other)
  Sender: FDA-Public Use
  Company Number: IT-NOVARTISPH-NVSC2022IT199622

PATIENT
  Age: 54 Year
  Sex: Female

DRUGS (1)
  1. PAZOPANIB [Suspect]
     Active Substance: PAZOPANIB
     Indication: Chondrosarcoma
     Dosage: UNK 800 MG/DIE
     Route: 065
     Dates: start: 202007

REACTIONS (2)
  - Hepatotoxicity [Unknown]
  - Product use in unapproved indication [Unknown]
